APPROVED DRUG PRODUCT: PROMETHAZINE HYDROCHLORIDE AND CODEINE PHOSPHATE
Active Ingredient: CODEINE PHOSPHATE; PROMETHAZINE HYDROCHLORIDE
Strength: 10MG/5ML;6.25MG/5ML
Dosage Form/Route: SYRUP;ORAL
Application: A040151 | Product #001
Applicant: HIKMA PHARMACEUTICALS USA INC
Approved: Aug 26, 1997 | RLD: No | RS: No | Type: DISCN